FAERS Safety Report 21084157 (Version 1)
Quarter: 2022Q3

REPORT INFORMATION
  Report Type: Spontaneous
  Country: US (occurrence: US)
  Receive Date: 20220714
  Receipt Date: 20220714
  Transmission Date: 20221026
  Serious: No
  Sender: FDA-Public Use
  Company Number: US-JAZZ-2022-US-014893

PATIENT
  Sex: Male

DRUGS (4)
  1. EPIDIOLEX [Suspect]
     Active Substance: CANNABIDIOL
     Indication: Lennox-Gastaut syndrome
     Dosage: 3 MILLILITER, BID
     Route: 048
  2. PROAIR HFA [Concomitant]
     Active Substance: ALBUTEROL SULFATE
  3. CLOBAZAM [Concomitant]
     Active Substance: CLOBAZAM
  4. LACTULOSE [Concomitant]
     Active Substance: LACTULOSE

REACTIONS (1)
  - Product administration interrupted [Unknown]
